FAERS Safety Report 14472784 (Version 1)
Quarter: 2018Q1

REPORT INFORMATION
  Report Type: Spontaneous
  Country: US (occurrence: US)
  Receive Date: 20180201
  Receipt Date: 20180201
  Transmission Date: 20180509
  Serious: No
  Sender: FDA-Public Use
  Company Number: US-KADMON PHARMACEUTICALS, LLC-KAD201708-000902

PATIENT
  Age: 73 Year
  Sex: Female

DRUGS (3)
  1. RIBASPHERE RIBAPAK [Suspect]
     Active Substance: RIBAVIRIN
     Dosage: 1000 MG/DAY IN DIVIDED DOSES (STRENGTH: 600/400)
     Route: 048
     Dates: start: 20120203, end: 20120210
  2. PEG-INTERFERON ALFA-2A [Suspect]
     Active Substance: PEGINTERFERON ALFA-2A
     Dosage: PRE-FILLED SYRINGE
     Route: 058
     Dates: start: 20120203, end: 20120210
  3. TELAPREVIR [Suspect]
     Active Substance: TELAPREVIR
     Dates: start: 20120203, end: 20120210

REACTIONS (6)
  - Injection site reaction [Unknown]
  - Rash papular [Unknown]
  - Fatigue [Unknown]
  - Skin reaction [Recovered/Resolved]
  - Dysgeusia [Recovered/Resolved]
  - Nausea [Unknown]
